FAERS Safety Report 6342120-0 (Version None)
Quarter: 2009Q3

REPORT INFORMATION
  Report Type: 
  Country: None (occurrence: None)
  Receive Date: 20090903
  Receipt Date: 20090903
  Transmission Date: 20100115
  Serious: No
  Sender: FDA-Public Use
  Company Number: None

PATIENT
  Age: 67 Year
  Sex: Female
  Weight: 99.7913 kg

DRUGS (1)
  1. VALTREX [Suspect]
     Indication: KERATITIS
     Dosage: 1000 MG 3 X DAY ORAL
     Route: 048
     Dates: start: 20090709, end: 20090715

REACTIONS (4)
  - ABDOMINAL DISTENSION [None]
  - ABDOMINAL PAIN [None]
  - DIVERTICULITIS [None]
  - INFLAMMATION [None]
